FAERS Safety Report 24849176 (Version 1)
Quarter: 2025Q1

REPORT INFORMATION
  Report Type: Spontaneous
  Country: US (occurrence: US)
  Receive Date: 20250116
  Receipt Date: 20250116
  Transmission Date: 20250408
  Serious: No
  Sender: EISAI
  Company Number: US-Eisai-EC-2025-181731

PATIENT
  Sex: Male
  Weight: 85.3 kg

DRUGS (14)
  1. LENVIMA [Suspect]
     Active Substance: LENVATINIB
     Indication: Renal cell carcinoma
     Route: 048
     Dates: start: 20240628, end: 2024
  2. LENVIMA [Suspect]
     Active Substance: LENVATINIB
     Route: 048
     Dates: start: 20240905
  3. VALSARTAN [Suspect]
     Active Substance: VALSARTAN
     Indication: Product used for unknown indication
     Route: 065
     Dates: end: 2024
  4. HYDROCHLOROTHIAZIDE [Suspect]
     Active Substance: HYDROCHLOROTHIAZIDE
     Indication: Product used for unknown indication
     Route: 065
     Dates: end: 2024
  5. MUCINEX [Concomitant]
     Active Substance: GUAIFENESIN
  6. METRONIDAZOLE [Concomitant]
     Active Substance: METRONIDAZOLE
  7. ACIDOPHILUS [Concomitant]
     Active Substance: LACTOBACILLUS ACIDOPHILUS
  8. VITAMIN B12 [Concomitant]
     Active Substance: CYANOCOBALAMIN
  9. PREDNISONE [Concomitant]
     Active Substance: PREDNISONE
  10. EVEROLIMUS [Concomitant]
     Active Substance: EVEROLIMUS
  11. EZETIMIBE [Concomitant]
     Active Substance: EZETIMIBE
  12. METAMUCIIL [Concomitant]
  13. CLARITIN [Concomitant]
     Active Substance: LORATADINE
  14. ZINC [Concomitant]
     Active Substance: ZINC

REACTIONS (3)
  - Blood pressure increased [Unknown]
  - Hepatic enzyme increased [Unknown]
  - Urinary incontinence [Recovering/Resolving]

NARRATIVE: CASE EVENT DATE: 20240101
